FAERS Safety Report 20330980 (Version 1)
Quarter: 2022Q1

REPORT INFORMATION
  Report Type: Report from Study
  Country: ZA (occurrence: ZA)
  Receive Date: 20220113
  Receipt Date: 20220113
  Transmission Date: 20220423
  Serious: Yes (Disabling, Other)
  Sender: FDA-Public Use
  Company Number: ZA-SA-SAC20210630000728

PATIENT
  Age: 69 Year
  Sex: Male

DRUGS (9)
  1. INSULIN GLARGINE [Suspect]
     Active Substance: INSULIN GLARGINE
     Indication: Type 2 diabetes mellitus
     Dosage: 35 IU, Q12H
     Route: 058
  2. INSULIN GLARGINE [Suspect]
     Active Substance: INSULIN GLARGINE
     Dosage: 35 IU, HS
     Route: 058
     Dates: start: 20080629
  3. SIMVASTATIN [Concomitant]
     Active Substance: SIMVASTATIN
     Dosage: 20 MG, HS
     Dates: start: 20210715
  4. HUMALOG [Concomitant]
     Active Substance: INSULIN LISPRO
     Dosage: BL (BEFORE LUNCH)-29 UNITS,BB (BEFORE BREAKFAST)-16 UNITS,BS (BEFORE SUPPER)-16 UNITS, TID
     Dates: start: 20210715
  5. ECOTRIN [Concomitant]
     Active Substance: ASPIRIN
     Dosage: 81 MG, QD (AFTER BREAKFAST)
     Dates: start: 20210715
  6. EUTHYROX [Concomitant]
     Active Substance: LEVOTHYROXINE SODIUM
     Dosage: UNK
  7. PERINDOPRIL ERBUMINE [Concomitant]
     Active Substance: PERINDOPRIL ERBUMINE
     Dosage: 4 MG, QD (AFTER BREAKFAST)
     Dates: start: 20210715
  8. ZOLPIDEM TARTRATE [Concomitant]
     Active Substance: ZOLPIDEM TARTRATE
     Dosage: 10 MG, HS
     Dates: start: 20210715
  9. TRAMADOL HYDROCHLORIDE [Concomitant]
     Active Substance: TRAMADOL HYDROCHLORIDE
     Dosage: 50 MG, QD (AFTER BREAKFAST)
     Dates: start: 20210715

REACTIONS (4)
  - Diabetes mellitus inadequate control [Recovering/Resolving]
  - Inappropriate schedule of product administration [Unknown]
  - Injection site pain [Unknown]
  - Pain [Not Recovered/Not Resolved]

NARRATIVE: CASE EVENT DATE: 20200101
